FAERS Safety Report 13937024 (Version 1)
Quarter: 2017Q3

REPORT INFORMATION
  Report Type: Spontaneous
  Country: US (occurrence: US)
  Receive Date: 20170905
  Receipt Date: 20170905
  Transmission Date: 20171127
  Serious: No
  Sender: FDA-Public Use
  Company Number: US-PFIZER INC-2017378629

PATIENT
  Age: 60 Year
  Sex: Female
  Weight: 86.18 kg

DRUGS (11)
  1. LYRICA [Suspect]
     Active Substance: PREGABALIN
     Indication: SPINAL COLUMN STENOSIS
     Dosage: 75MG ONCE DAILY FOR THE FIRST 3 DAYS
     Dates: start: 20170822
  2. LYRICA [Suspect]
     Active Substance: PREGABALIN
     Indication: ARTHRITIS
  3. IBUPROFEN. [Concomitant]
     Active Substance: IBUPROFEN
     Indication: INFLAMMATION
     Dosage: 600MG 4 TIMES PER DAY
     Route: 048
  4. LISINOPRIL/HCTZ [Concomitant]
     Active Substance: HYDROCHLOROTHIAZIDE\LISINOPRIL
     Indication: HYPERTENSION
     Dosage: [LISINOPRIL 20MG]/[HYDROCHLOROTHIAZIDE 12.5MG] BY MOUTH ONCE IN THE MORNING
     Route: 048
  5. NORVASC [Concomitant]
     Active Substance: AMLODIPINE BESYLATE
     Indication: HYPERTENSION
     Dosage: UNK, 1X/DAY
     Route: 048
  6. FLEXERIL [Concomitant]
     Active Substance: CYCLOBENZAPRINE HYDROCHLORIDE
     Indication: MUSCLE SPASMS
     Dosage: 5MG AS NEEDED UP TO THREE TIMES DAILY
     Route: 048
     Dates: start: 201706
  7. LYRICA [Suspect]
     Active Substance: PREGABALIN
     Indication: INTERVERTEBRAL DISC PROTRUSION
     Dosage: 75MG TWICE DAILY
     Dates: start: 20170825
  8. DICLOFENAC [Concomitant]
     Active Substance: DICLOFENAC
     Indication: INFLAMMATION
     Dosage: 75MG ONE TABLET TWICE DAILY
     Route: 048
     Dates: start: 20170822
  9. NORCO [Concomitant]
     Active Substance: ACETAMINOPHEN\HYDROCODONE BITARTRATE
     Indication: PAIN
     Dosage: 7.5/325TWICE DAILY
     Route: 048
     Dates: start: 201706
  10. LEXAPRO [Concomitant]
     Active Substance: ESCITALOPRAM OXALATE
     Indication: DEPRESSION
     Dosage: 10MG ONCE DAILY
     Route: 048
  11. BUSPAR HCL [Concomitant]
     Indication: ANXIETY
     Dosage: 15MG TWICE DAILY
     Route: 048

REACTIONS (1)
  - Irritability [Not Recovered/Not Resolved]
